FAERS Safety Report 14305194 (Version 1)
Quarter: 2017Q4

REPORT INFORMATION
  Report Type: Spontaneous
  Country: JP (occurrence: JP)
  Receive Date: 20171219
  Receipt Date: 20171219
  Transmission Date: 20180321
  Serious: Yes (Hospitalization)
  Sender: FDA-Public Use
  Company Number: JP-OTSUKA-006155

PATIENT
  Age: 56 Year
  Sex: Male
  Weight: 91.7 kg

DRUGS (7)
  1. DEPAKENE-R JPN [Suspect]
     Active Substance: VALPROATE SODIUM
     Indication: ANGER
     Dosage: 600 MG, BID
     Route: 048
     Dates: start: 20060527
  2. ABILIFY [Suspect]
     Active Substance: ARIPIPRAZOLE
     Dosage: 24 MG, QD
     Route: 048
     Dates: start: 20090713
  3. ABILIFY [Suspect]
     Active Substance: ARIPIPRAZOLE
     Indication: SCHIZOPHRENIA
     Dosage: 24 MG, QD
     Route: 048
     Dates: start: 20060927, end: 20080717
  4. ABILIFY [Suspect]
     Active Substance: ARIPIPRAZOLE
     Dosage: 30 MG, QD
     Route: 048
     Dates: start: 20080718, end: 20090712
  5. EVAMYL [Suspect]
     Active Substance: LORMETAZEPAM
     Indication: INSOMNIA
     Dosage: 2 MG, SINGLE
     Route: 048
     Dates: start: 20060921
  6. ZOPICLONE [Suspect]
     Active Substance: ZOPICLONE
     Indication: INSOMNIA
     Dosage: 10 MG, QD
     Route: 048
     Dates: start: 20060921
  7. AMOBAN [Suspect]
     Active Substance: ZOPICLONE
     Indication: INSOMNIA
     Dosage: 10 MG, SINGLE
     Route: 048
     Dates: start: 20060921

REACTIONS (4)
  - Gastrooesophageal reflux disease [Recovered/Resolved]
  - Abnormal sensation in eye [Recovered/Resolved]
  - Hiatus hernia [Recovered/Resolved]
  - Gastrointestinal haemorrhage [Recovered/Resolved]

NARRATIVE: CASE EVENT DATE: 20090306
